FAERS Safety Report 22062212 (Version 2)
Quarter: 2023Q1

REPORT INFORMATION
  Report Type: Report from Study
  Country: US (occurrence: US)
  Receive Date: 20230304
  Receipt Date: 20230325
  Transmission Date: 20230418
  Serious: Yes (Hospitalization, Other)
  Sender: FDA-Public Use
  Company Number: US-AMGEN-USACT2023036378

PATIENT
  Age: 9 Year
  Sex: Male
  Weight: 44.5 kg

DRUGS (9)
  1. BLINATUMOMAB [Suspect]
     Active Substance: BLINATUMOMAB
     Indication: B precursor type acute leukaemia
     Dosage: 15 MICROGRAM/SQ. METER
     Route: 042
     Dates: start: 20221015, end: 20221016
  2. BLINATUMOMAB [Suspect]
     Active Substance: BLINATUMOMAB
     Dosage: 5 MICROGRAM/SQ. METER, TOTAL DOSE ADMINISTERED: 19.96 MCG
     Route: 042
     Dates: start: 20221017, end: 20221113
  3. CYCLOPHOSPHAMIDE [Suspect]
     Active Substance: CYCLOPHOSPHAMIDE
     Indication: B precursor type acute leukaemia
     Dosage: UNK, LAST ADMINISTERED ON 30-AUG-2022
     Route: 065
  4. CYTARABINE [Suspect]
     Active Substance: CYTARABINE
     Indication: B precursor type acute leukaemia
     Dosage: UNK, LAST ADMINISTERED ON 09-SEP-2022
     Route: 065
  5. DEXAMETHASONE [Suspect]
     Active Substance: DEXAMETHASONE
     Indication: B precursor type acute leukaemia
     Dosage: UNK, LAST ADMINISTERED ON 15-OCT-2022
     Route: 065
  6. METHOTREXATE [Suspect]
     Active Substance: METHOTREXATE
     Indication: B precursor type acute leukaemia
     Dosage: TOTAL DOSE ADMINISTERED: 15 MG, LAST ADMINISTERED ON 15-OCT-2022
     Route: 029
  7. VINCRISTINE SULFATE [Suspect]
     Active Substance: VINCRISTINE SULFATE
     Indication: B precursor type acute leukaemia
     Dosage: UNK, LAST ADMINISTERED ON 19-SEP-2022
     Route: 065
  8. ONCASPAR [Suspect]
     Active Substance: PEGASPARGASE
     Indication: B precursor type acute leukaemia
     Dosage: LAST ADMINISTERED ON 09-AUG-2022/ PEG REACTION NOTED CHANGED TO RYLAZE FOR NEXT DOSE
     Route: 065
  9. MERCAPTOPURINE [Suspect]
     Active Substance: MERCAPTOPURINE
     Indication: B precursor type acute leukaemia
     Dosage: UNK, LAST ADMINISTERED ON 11-SEP-2022
     Route: 065

REACTIONS (2)
  - Depressed level of consciousness [Recovered/Resolved]
  - Dyskinesia [Recovered/Resolved]

NARRATIVE: CASE EVENT DATE: 20221016
